FAERS Safety Report 15282150 (Version 6)
Quarter: 2019Q1

REPORT INFORMATION
  Report Type: Spontaneous
  Country: US (occurrence: US)
  Receive Date: 20180815
  Receipt Date: 20190104
  Transmission Date: 20190417
  Serious: Yes (Other)
  Sender: FDA-Public Use
  Company Number: US-ASTRAZENECA-2018SF02715

PATIENT
  Age: 26194 Day
  Sex: Female
  Weight: 97 kg

DRUGS (6)
  1. SYMBICORT [Suspect]
     Active Substance: BUDESONIDE\FORMOTEROL FUMARATE DIHYDRATE
     Indication: CHRONIC OBSTRUCTIVE PULMONARY DISEASE
     Dosage: 160/4.5 MCG TWO INHALATIONS, TWICE DAILY
     Route: 055
     Dates: start: 2013
  2. BEVESPI AEROSPHERE [Suspect]
     Active Substance: FORMOTEROL FUMARATE\GLYCOPYRROLATE
     Indication: EMPHYSEMA
     Dosage: 2 PUFFS, TWICE A DAY
     Route: 055
     Dates: start: 20181017
  3. TUDORZA PRESSAIR [Suspect]
     Active Substance: ACLIDINIUM BROMIDE
     Indication: EMPHYSEMA
     Route: 055
     Dates: start: 2013
  4. OXYGEN. [Concomitant]
     Active Substance: OXYGEN
  5. TUDORZA PRESSAIR [Suspect]
     Active Substance: ACLIDINIUM BROMIDE
     Indication: CHRONIC OBSTRUCTIVE PULMONARY DISEASE
     Route: 055
     Dates: start: 2013
  6. SPIRIVA [Concomitant]
     Active Substance: TIOTROPIUM BROMIDE MONOHYDRATE
     Indication: EMPHYSEMA
     Route: 055

REACTIONS (12)
  - Visual acuity reduced [Unknown]
  - Product dose omission [Not Recovered/Not Resolved]
  - Weight decreased [Unknown]
  - Confusional state [Unknown]
  - Drug ineffective [Unknown]
  - Device malfunction [Unknown]
  - Dyspnoea [Not Recovered/Not Resolved]
  - Frustration tolerance decreased [Unknown]
  - Intentional device misuse [Not Recovered/Not Resolved]
  - Asthenia [Unknown]
  - Myocardial infarction [Unknown]
  - Device issue [Unknown]

NARRATIVE: CASE EVENT DATE: 201802
